FAERS Safety Report 25775022 (Version 2)
Quarter: 2025Q4

REPORT INFORMATION
  Report Type: Spontaneous
  Country: CN (occurrence: CN)
  Receive Date: 20250909
  Receipt Date: 20251110
  Transmission Date: 20260117
  Serious: Yes (Death, Hospitalization, Disabling, Other)
  Sender: PFIZER
  Company Number: CN-PFIZER INC-PV202500106811

PATIENT
  Age: 39 Year
  Sex: Female
  Weight: 42.5 kg

DRUGS (2)
  1. CYTARABINE [Suspect]
     Active Substance: CYTARABINE
     Indication: Chemotherapy
     Dosage: 2700.000 MG, 1X/DAY
     Route: 041
     Dates: start: 20250404, end: 20250408
  2. CYTARABINE [Suspect]
     Active Substance: CYTARABINE
     Dosage: 2700.000 MG, 1X/DAY
     Route: 041
     Dates: start: 20250404, end: 20250408

REACTIONS (7)
  - Cardiopulmonary failure [Fatal]
  - Cardiac failure acute [Fatal]
  - Sepsis [Fatal]
  - Pneumonia [Fatal]
  - Acute myeloid leukaemia [Fatal]
  - Malignant neoplasm progression [Fatal]
  - Myelosuppression [Not Recovered/Not Resolved]

NARRATIVE: CASE EVENT DATE: 20250101
